FAERS Safety Report 12920907 (Version 1)
Quarter: 2016Q4

REPORT INFORMATION
  Report Type: Spontaneous
  Country: US (occurrence: US)
  Receive Date: 20161108
  Receipt Date: 20161108
  Transmission Date: 20170207
  Serious: Yes (Life-Threatening, Other)
  Sender: FDA-Public Use
  Company Number: None

PATIENT
  Age: 71 Year
  Sex: Female
  Weight: 88.45 kg

DRUGS (9)
  1. RESTASIS [Suspect]
     Active Substance: CYCLOSPORINE
     Indication: IRITIS
     Dosage: RESTASIS - 1 DROP PER VIAL - 1 DROP IN EACH EYE - 2X DAILY?
     Route: 047
     Dates: start: 201510, end: 201510
  2. TYLENOL [Concomitant]
     Active Substance: ACETAMINOPHEN
  3. VITAMIN A [Concomitant]
     Active Substance: VITAMIN A
  4. VITAMIN D3 [Concomitant]
     Active Substance: CHOLECALCIFEROL
  5. RESTASIS [Suspect]
     Active Substance: CYCLOSPORINE
     Indication: DRY EYE
     Dosage: RESTASIS - 1 DROP PER VIAL - 1 DROP IN EACH EYE - 2X DAILY?
     Route: 047
     Dates: start: 201510, end: 201510
  6. FUROSEMIDE. [Concomitant]
     Active Substance: FUROSEMIDE
  7. RESTASIS [Suspect]
     Active Substance: CYCLOSPORINE
     Indication: UVEITIS
     Dosage: RESTASIS - 1 DROP PER VIAL - 1 DROP IN EACH EYE - 2X DAILY?
     Route: 047
     Dates: start: 201510, end: 201510
  8. PLAVIX [Concomitant]
     Active Substance: CLOPIDOGREL BISULFATE
  9. LANTUS [Concomitant]
     Active Substance: INSULIN GLARGINE

REACTIONS (6)
  - Headache [None]
  - Bone swelling [None]
  - Eye swelling [None]
  - Swelling face [None]
  - Diarrhoea [None]
  - Local swelling [None]
